FAERS Safety Report 18205567 (Version 1)
Quarter: 2020Q3

REPORT INFORMATION
  Report Type: Spontaneous
  Country: US (occurrence: US)
  Receive Date: 20200828
  Receipt Date: 20200828
  Transmission Date: 20201103
  Serious: Yes (Hospitalization)
  Sender: FDA-Public Use
  Company Number: US-LUPIN PHARMACEUTICALS INC.-2020-05175

PATIENT
  Age: 34 Year
  Sex: Female

DRUGS (16)
  1. LORAZEPAM. [Suspect]
     Active Substance: LORAZEPAM
     Indication: AGITATION
  2. OLANZAPINE. [Suspect]
     Active Substance: OLANZAPINE
     Indication: BIPOLAR I DISORDER
     Dosage: DOSAGE AT INITIATION NOT STATED
     Route: 065
  3. CLONAZEPAM. [Suspect]
     Active Substance: CLONAZEPAM
     Indication: MANIA
     Dosage: 1 MILLIGRAM, TID (THREE TIMES A DAY)
     Route: 065
  4. CHLORPROMAZINE. [Suspect]
     Active Substance: CHLORPROMAZINE
     Indication: MANIA
     Dosage: 400 MILLIGRAM
     Route: 065
  5. CETROTIDE [Concomitant]
     Active Substance: CETRORELIX ACETATE
     Indication: OVULATION INDUCTION
     Dosage: 0.25 MILLIGRAM, QD
     Route: 065
  6. LORAZEPAM. [Suspect]
     Active Substance: LORAZEPAM
     Indication: MANIA
     Dosage: 8 MILLIGRAM
     Route: 065
  7. DIPHENHYDRAMINE. [Suspect]
     Active Substance: DIPHENHYDRAMINE
     Indication: MANIA
     Dosage: 200 MILLIGRAM
     Route: 065
  8. DIPHENHYDRAMINE. [Suspect]
     Active Substance: DIPHENHYDRAMINE
     Indication: AGITATION
  9. CLONAZEPAM. [Suspect]
     Active Substance: CLONAZEPAM
     Indication: BIPOLAR I DISORDER
     Dosage: 0.5 MILLIGRAM AS NEEDED
     Route: 065
  10. HUMAN CHORIONIC GONADOTROPIN [Concomitant]
     Active Substance: GONADOTROPHIN, CHORIONIC
     Indication: OVULATION INDUCTION
     Dosage: 10000 UNIT (10,000?UNITS; SINGLE DOSE)
     Route: 065
  11. VALPROIC ACID. [Suspect]
     Active Substance: VALPROIC ACID
     Indication: BIPOLAR I DISORDER
     Dosage: UNK (WITHIN THERAPEUTIC LEVEL)
     Route: 065
  12. OLANZAPINE. [Suspect]
     Active Substance: OLANZAPINE
     Indication: MANIA
     Dosage: 30 MILLIGRAM, QD
     Route: 065
  13. VALPROIC ACID. [Suspect]
     Active Substance: VALPROIC ACID
     Indication: MANIA
  14. QUETIAPINE. [Concomitant]
     Active Substance: QUETIAPINE
     Indication: INSOMNIA
     Dosage: 25 MILLIGRAM (OCCASIONALLY AT BEDTIME)
     Route: 065
  15. GONAL?F [Concomitant]
     Active Substance: FOLLITROPIN
     Indication: OVULATION INDUCTION
     Dosage: 75 UNIT
     Route: 065
  16. MENOPUR [Concomitant]
     Active Substance: FOLLITROPIN\LUTEINIZING HORMONE
     Indication: OVULATION INDUCTION
     Dosage: UNK FIXED?DOSE COMBINATION OF RECOMBINANT FOLLICLE STIMULATING HORMONE/LUTEINIZING HORMONE CONTAININ
     Route: 065

REACTIONS (4)
  - Transaminases increased [Unknown]
  - Constipation [Unknown]
  - Drug ineffective [Unknown]
  - Mania [Recovering/Resolving]
